FAERS Safety Report 8920371 (Version 2)
Quarter: 2012Q4

REPORT INFORMATION
  Report Type: 
  Country: JP (occurrence: JP)
  Receive Date: 20121122
  Receipt Date: 20121206
  Transmission Date: 20130627
  Serious: Yes (Other)
  Sender: FDA-Public Use
  Company Number: JP-US-EMD SERONO, INC.-7177100

PATIENT
  Age: 25 Year
  Sex: Female

DRUGS (6)
  1. GONAL-F RFF PEN [Suspect]
     Indication: POLYCYSTIC OVARIES
     Route: 058
     Dates: start: 20120511, end: 20120518
  2. GONAL-F RFF PEN [Suspect]
     Indication: OVULATION INDUCTION
     Route: 058
     Dates: start: 20120519, end: 20120522
  3. CHORIONIC GONADOTROPHIN [Suspect]
     Indication: OVULATION INDUCTION
     Route: 030
     Dates: start: 20120523, end: 20120523
  4. CHORIONIC GONADOTROPHIN [Suspect]
     Route: 030
     Dates: start: 20120528, end: 20120528
  5. THYRADIN S [Concomitant]
     Indication: HYPOTHYROIDISM
     Route: 048
  6. DUPHASTON [Concomitant]
     Indication: OVULATION INDUCTION
     Route: 048
     Dates: start: 20120531, end: 20120605

REACTIONS (2)
  - Ovarian hyperstimulation syndrome [Recovering/Resolving]
  - Twin pregnancy [Unknown]
